FAERS Safety Report 17130565 (Version 10)
Quarter: 2020Q3

REPORT INFORMATION
  Report Type: Report from Study
  Country: CN (occurrence: CN)
  Receive Date: 20191209
  Receipt Date: 20200706
  Transmission Date: 20201102
  Serious: Yes (Hospitalization)
  Sender: FDA-Public Use
  Company Number: CN-ROCHE-2484890

PATIENT
  Age: 63 Year
  Sex: Female
  Weight: 45 kg

DRUGS (18)
  1. METHYLPREDNISOLONE SODIUM SUCCINATE. [Concomitant]
     Active Substance: METHYLPREDNISOLONE SODIUM SUCCINATE
     Route: 065
     Dates: start: 20191124, end: 20191202
  2. BUDESONIDE. [Concomitant]
     Active Substance: BUDESONIDE
     Route: 065
     Dates: start: 20191201, end: 20191201
  3. PREDNISONE ACETATE [Concomitant]
     Active Substance: PREDNISONE ACETATE
     Route: 065
     Dates: start: 20191203
  4. POTASSIUM CHLORIDE. [Concomitant]
     Active Substance: POTASSIUM CHLORIDE
     Dosage: SUSTAINED RELEASE
     Route: 065
     Dates: start: 20191127
  5. FUROSEMIDE. [Concomitant]
     Active Substance: FUROSEMIDE
     Route: 065
     Dates: start: 20191124, end: 20191124
  6. SODIUM BICARBONATE. [Concomitant]
     Active Substance: SODIUM BICARBONATE
     Route: 065
     Dates: start: 20191124, end: 20191201
  7. COMPOUND SODIUM CHLORIDE [CALCIUM CHLORIDE;POTASSIUM CHLORIDE;SODIUM C [Concomitant]
     Route: 065
     Dates: start: 20191124, end: 20191124
  8. INDOMETHACIN [INDOMETACIN] [Concomitant]
     Active Substance: INDOMETHACIN
     Route: 065
     Dates: start: 20191124, end: 20191124
  9. LACTOBACILLUS ACIDOPHILUS COMPOUND [Concomitant]
     Active Substance: LACTOBACILLUS ACIDOPHILUS
     Route: 065
     Dates: start: 20191130, end: 20191201
  10. POTASSIUM CHLORIDE. [Concomitant]
     Active Substance: POTASSIUM CHLORIDE
     Route: 065
     Dates: start: 20191124, end: 20191127
  11. COMPOUND SODIUM CHLORIDE [CALCIUM CHLORIDE;POTASSIUM CHLORIDE;SODIUM C [Concomitant]
     Route: 065
     Dates: start: 20191124, end: 20191124
  12. IPRATROPIUM BROMIDE. [Concomitant]
     Active Substance: IPRATROPIUM BROMIDE
     Route: 065
     Dates: start: 20191201, end: 20191201
  13. ATEZOLIZUMAB. [Suspect]
     Active Substance: ATEZOLIZUMAB
     Indication: NON-SMALL CELL LUNG CANCER
     Dosage: DATE OF LAST DOSE PRIOR TO ADVERSE EVENT ONSET: 06/NOV/2019
     Route: 042
     Dates: start: 20190703, end: 20191106
  14. AMBROXOL HYDROCHLORIDE [Concomitant]
     Active Substance: AMBROXOL HYDROCHLORIDE
     Route: 065
     Dates: start: 20191124, end: 20191203
  15. POTASSIUM CHLORIDE. [Concomitant]
     Active Substance: POTASSIUM CHLORIDE
     Route: 065
     Dates: start: 20191111, end: 20191127
  16. LACTULOSE. [Concomitant]
     Active Substance: LACTULOSE
     Dosage: SOLUTION
     Route: 048
     Dates: start: 20191130, end: 20191201
  17. OMEPRAZOLE. [Concomitant]
     Active Substance: OMEPRAZOLE
     Dosage: ENTERIC COATED PELLETS
     Route: 065
     Dates: start: 20191203
  18. HEPARIN CALCIUM [Concomitant]
     Active Substance: HEPARIN CALCIUM
     Route: 065
     Dates: start: 20191217, end: 2019

REACTIONS (5)
  - Dermatitis allergic [Recovered/Resolved]
  - Hypothyroidism [Recovered/Resolved]
  - Autoimmune myocarditis [Recovered/Resolved]
  - Myositis [Recovered/Resolved]
  - Liver injury [Recovered/Resolved]

NARRATIVE: CASE EVENT DATE: 20191124
